FAERS Safety Report 5953371-9 (Version None)
Quarter: 2008Q4

REPORT INFORMATION
  Report Type: 
  Country: None (occurrence: None)
  Receive Date: 20081114
  Receipt Date: 20081105
  Transmission Date: 20090506
  Serious: Yes (Death, Hospitalization)
  Sender: FDA-Public Use
  Company Number: FR-JNJFOC-20040301753

PATIENT
  Age: 57 Year
  Sex: Male
  Weight: 73 kg

DRUGS (10)
  1. REMICADE [Suspect]
     Route: 042
  2. REMICADE [Suspect]
     Indication: ANKYLOSING SPONDYLITIS
     Route: 042
  3. IMMUNOSUPPRESSANT [Concomitant]
  4. VOLTAREN [Concomitant]
     Indication: PAIN
     Route: 048
  5. PROPOFAN [Concomitant]
     Indication: PAIN
     Route: 048
  6. ANTALVIC [Concomitant]
     Indication: PAIN
     Route: 048
  7. THIOCOLCHICOZIDE [Concomitant]
     Route: 048
  8. TETRAZEPAM [Concomitant]
     Route: 048
  9. OMEPRAZOLE [Concomitant]
     Route: 048
  10. MEDIATOR [Concomitant]
     Route: 048

REACTIONS (4)
  - AMYOTROPHIC LATERAL SCLEROSIS [None]
  - ANKYLOSING SPONDYLITIS [None]
  - EMPHYSEMA [None]
  - MUSCLE SPASMS [None]
